FAERS Safety Report 5373270-3 (Version None)
Quarter: 2007Q2

REPORT INFORMATION
  Report Type: 
  Country: None (occurrence: None)
  Receive Date: 20070628
  Receipt Date: 20070617
  Transmission Date: 20071010
  Serious: Yes (Other)
  Sender: FDA-Public Use
  Company Number: GB-JNJFOC-20070604140

PATIENT
  Sex: Female

DRUGS (4)
  1. REMINYL XR [Suspect]
  2. REMINYL XR [Suspect]
     Indication: DRUG USE FOR UNKNOWN INDICATION
  3. ATORVASTATIN [Concomitant]
  4. ASPIRIN [Concomitant]

REACTIONS (4)
  - CONFUSIONAL STATE [None]
  - DRUG DISPENSING ERROR [None]
  - NAUSEA [None]
  - SOMNOLENCE [None]
